FAERS Safety Report 8332881-3 (Version None)
Quarter: 2012Q1

REPORT INFORMATION
  Report Type: 
  Country: None (occurrence: None)
  Receive Date: 20120327
  Receipt Date: 20100802
  Transmission Date: 20120608
  Serious: Yes (Disabling)
  Sender: FDA-Public Use
  Company Number: PHEH2009US16075

PATIENT
  Age: 52 Year
  Sex: Female
  Weight: 101.4 kg

DRUGS (1)
  1. GLEEVEC [Suspect]
     Indication: GASTROINTESTINAL STROMAL TUMOUR
     Dosage: 600 MG, DAILY, ORAL
     Route: 048
     Dates: start: 20040101

REACTIONS (6)
  - ABDOMINAL PAIN [None]
  - RASH [None]
  - OEDEMA [None]
  - SOMNOLENCE [None]
  - MUSCLE SPASMS [None]
  - DIARRHOEA [None]
